FAERS Safety Report 8764910 (Version 1)
Quarter: 2012Q4

REPORT INFORMATION
  Report Type: 
  Country: US (occurrence: US)
  Receive Date: 20120902
  Receipt Date: 20120902
  Transmission Date: 20130627
  Serious: No
  Sender: FDA-Public Use
  Company Number: US-TEVA-355084USA

PATIENT
  Age: 71 Year
  Sex: Female

DRUGS (1)
  1. NUVIGIL [Suspect]
     Dosage: 150 or 250 mg
     Dates: start: 20120820, end: 20120820

REACTIONS (1)
  - Tachycardia [Unknown]
